FAERS Safety Report 14061770 (Version 2)
Quarter: 2017Q4

REPORT INFORMATION
  Report Type: Spontaneous
  Country: BR (occurrence: BR)
  Receive Date: 20171009
  Receipt Date: 20171014
  Transmission Date: 20180321
  Serious: Yes (Other)
  Sender: FDA-Public Use
  Company Number: BR-AMGEN-BRASP2017152455

PATIENT
  Sex: Female

DRUGS (1)
  1. ENBREL [Suspect]
     Active Substance: ETANERCEPT
     Indication: PSORIATIC ARTHROPATHY
     Dosage: 50 MG, WEEKLY
     Route: 065
     Dates: start: 201708

REACTIONS (8)
  - Hepatotoxicity [Unknown]
  - Aspartate aminotransferase abnormal [Unknown]
  - Abdominal pain [Recovered/Resolved]
  - Portal vein thrombosis [Unknown]
  - Vena cava thrombosis [Unknown]
  - Gamma-glutamyltransferase abnormal [Unknown]
  - Alanine aminotransferase abnormal [Unknown]
  - Vasculitis [Unknown]
